FAERS Safety Report 11290379 (Version 7)
Quarter: 2016Q3

REPORT INFORMATION
  Report Type: Spontaneous
  Country: JP (occurrence: JP)
  Receive Date: 20150722
  Receipt Date: 20160701
  Transmission Date: 20161109
  Serious: Yes (Life-Threatening, Hospitalization, Other)
  Sender: FDA-Public Use
  Company Number: JP-009507513-1507JPN008811

PATIENT
  Age: 67 Year
  Sex: Male
  Weight: 67 kg

DRUGS (5)
  1. JANUVIA [Suspect]
     Active Substance: SITAGLIPTIN PHOSPHATE
     Indication: TYPE 2 DIABETES MELLITUS
     Dosage: 50 MG, QD
     Route: 048
     Dates: start: 20110121, end: 20150713
  2. METGLUCO [Concomitant]
     Active Substance: METFORMIN HYDROCHLORIDE
     Indication: TYPE 2 DIABETES MELLITUS
     Dosage: 500 MG, BID
     Route: 048
     Dates: start: 20100205, end: 20150703
  3. KLARICID [Concomitant]
     Active Substance: CLARITHROMYCIN
     Indication: INFECTION
     Dosage: DIVIDED DOSE FREQUENCY UNKNOWN, 400 MG, 1 DAY
     Route: 048
     Dates: start: 20150624, end: 20150703
  4. LIPIDIL [Concomitant]
     Active Substance: FENOFIBRATE
     Indication: DYSLIPIDAEMIA
     Dosage: DOSE: 53.3 DOSAGE FORM, QD
     Route: 048
     Dates: start: 20100205, end: 20150703
  5. LIVALO [Suspect]
     Active Substance: PITAVASTATIN CALCIUM
     Indication: DYSLIPIDAEMIA
     Dosage: 1 MG, QD
     Route: 048
     Dates: start: 20100205, end: 20150713

REACTIONS (1)
  - Interstitial lung disease [Recovering/Resolving]

NARRATIVE: CASE EVENT DATE: 20150703
